FAERS Safety Report 20657621 (Version 1)
Quarter: 2022Q1

REPORT INFORMATION
  Report Type: Spontaneous
  Country: US (occurrence: US)
  Receive Date: 20220331
  Receipt Date: 20220331
  Transmission Date: 20220423
  Serious: No
  Sender: FDA-Public Use
  Company Number: US-SANOFI-01037725

PATIENT
  Age: 52 Year

DRUGS (1)
  1. DUPIXENT [Suspect]
     Active Substance: DUPILUMAB
     Indication: Dermatitis atopic
     Dosage: 600 MG, 1X
     Route: 058
     Dates: start: 20220325, end: 20220325

REACTIONS (6)
  - Blood pressure decreased [Unknown]
  - Dizziness [Unknown]
  - Injection site irritation [Unknown]
  - Injection site pain [Unknown]
  - Unevaluable event [Unknown]
  - External vagal nerve stimulation [Unknown]

NARRATIVE: CASE EVENT DATE: 20220325
